FAERS Safety Report 10170262 (Version 3)
Quarter: 2014Q2

REPORT INFORMATION
  Report Type: Report from Study
  Country: DE (occurrence: DE)
  Receive Date: 20140513
  Receipt Date: 20140617
  Transmission Date: 20141212
  Serious: Yes (Hospitalization)
  Sender: FDA-Public Use
  Company Number: PHHY2014DE053807

PATIENT
  Sex: Male
  Weight: 95 kg

DRUGS (3)
  1. ULTIBRO BREEZHALER [Suspect]
     Indication: CHRONIC OBSTRUCTIVE PULMONARY DISEASE
     Dosage: 1 DF, QD
     Route: 055
     Dates: start: 20140121
  2. SALBUTAMOL CT [Concomitant]
     Dates: start: 20090109
  3. ENAHEXAL [Concomitant]

REACTIONS (1)
  - Joint dislocation [Recovering/Resolving]
